FAERS Safety Report 7156094-6 (Version None)
Quarter: 2010Q4

REPORT INFORMATION
  Report Type: 
  Country: None (occurrence: None)
  Receive Date: 20101123
  Receipt Date: 20100927
  Transmission Date: 20110411
  Serious: Yes (Hospitalization)
  Sender: FDA-Public Use
  Company Number: 019454

PATIENT
  Sex: Male
  Weight: 153.3 kg

DRUGS (6)
  1. CIMZIA [Suspect]
     Indication: CROHN'S DISEASE
     Dosage: 400 MG 1X/4 WEEKS SUBCUTANEOUS
     Route: 058
     Dates: start: 20100806
  2. ALPRAZOLAM [Concomitant]
  3. FAMOTIDINE [Concomitant]
  4. CELEXA [Concomitant]
  5. MORPHINE [Concomitant]
  6. CLONAZEPAM [Concomitant]

REACTIONS (5)
  - DYSPNOEA [None]
  - OEDEMA PERIPHERAL [None]
  - PANIC ATTACK [None]
  - RENAL FAILURE [None]
  - TINEA PEDIS [None]
